FAERS Safety Report 4806919-1 (Version None)
Quarter: 2005Q4

REPORT INFORMATION
  Report Type: 
  Country: None (occurrence: None)
  Receive Date: 20051020
  Receipt Date: 20051020
  Transmission Date: 20060501
  Serious: Yes (Death, Hospitalization)
  Sender: FDA-Public Use
  Company Number: None

PATIENT
  Age: 41 Year
  Sex: Male
  Weight: 50 kg

DRUGS (8)
  1. STAVUDINE [Suspect]
     Indication: HIV INFECTION
     Dosage: 30MG BID PO
     Route: 048
     Dates: start: 20050923, end: 20051004
  2. LAMIVUDINE [Suspect]
     Indication: HIV INFECTION
     Dosage: 150MG BID PO
     Route: 048
     Dates: start: 20050923, end: 20051004
  3. EFAVIRENZ [Suspect]
     Indication: HIV INFECTION
     Dosage: 800MG QHS PO
     Route: 048
     Dates: start: 20050923, end: 20051004
  4. RIFANAH [Concomitant]
  5. VITAMIN B COMPLEX CAP [Concomitant]
  6. VITAMIN B6 [Concomitant]
  7. COTRIMOXAZOLE [Concomitant]
  8. AMITRIPTYLINE HCL [Concomitant]

REACTIONS (9)
  - BODY TEMPERATURE INCREASED [None]
  - CONFUSIONAL STATE [None]
  - CONVULSION [None]
  - DEPRESSED LEVEL OF CONSCIOUSNESS [None]
  - FOAMING AT MOUTH [None]
  - MENINGITIS CRYPTOCOCCAL [None]
  - MUSCULOSKELETAL STIFFNESS [None]
  - TOXOPLASMOSIS [None]
  - VOMITING [None]
